FAERS Safety Report 12736826 (Version 1)
Quarter: 2020Q3

REPORT INFORMATION
  Report Type: Report from Study
  Country: US (occurrence: US)
  Receive Date: 20160912
  Receipt Date: 20160912
  Transmission Date: 20201104
  Serious: Yes (Other)
  Sender: FDA-Public Use
  Company Number: US-CELGENEUS-USA-2016088100

PATIENT

DRUGS (2)
  1. CEDIRANIB. [Suspect]
     Active Substance: CEDIRANIB
     Indication: THYROID CANCER
     Route: 065
  2. REVLIMID [Suspect]
     Active Substance: LENALIDOMIDE
     Indication: THYROID CANCER
     Dosage: 15 MILLIGRAM
     Route: 048

REACTIONS (8)
  - Palmar-plantar erythrodysaesthesia syndrome [Unknown]
  - Stomatitis [Unknown]
  - Diarrhoea [Unknown]
  - Neutropenia [Unknown]
  - Proteinuria [Unknown]
  - Fatigue [Unknown]
  - Asthenia [Unknown]
  - Hypertension [Unknown]
